FAERS Safety Report 21477568 (Version 2)
Quarter: 2023Q1

REPORT INFORMATION
  Report Type: Spontaneous
  Country: US (occurrence: US)
  Receive Date: 20221019
  Receipt Date: 20230216
  Transmission Date: 20230418
  Serious: Yes (Death, Hospitalization, Other)
  Sender: FDA-Public Use
  Company Number: US-CIPLA LTD.-2022US06120

PATIENT

DRUGS (2)
  1. ALBUTEROL [Suspect]
     Active Substance: ALBUTEROL
     Indication: Chronic obstructive pulmonary disease
     Dosage: UNK
     Route: 065
  2. ALBUTEROL [Suspect]
     Active Substance: ALBUTEROL
     Indication: Emphysema

REACTIONS (8)
  - Acute respiratory failure [Fatal]
  - Chronic obstructive pulmonary disease [Fatal]
  - Emphysema [Fatal]
  - Off label use [Unknown]
  - Product use in unapproved indication [Unknown]
  - Device ineffective [Unknown]
  - Device defective [Unknown]
  - Device occlusion [Unknown]
